FAERS Safety Report 16585082 (Version 1)
Quarter: 2019Q3

REPORT INFORMATION
  Report Type: Spontaneous
  Country: CA (occurrence: CA)
  Receive Date: 20190717
  Receipt Date: 20190717
  Transmission Date: 20191004
  Serious: Yes (Life-Threatening)
  Sender: FDA-Public Use
  Company Number: CA-BAYER-2019-129543

PATIENT
  Age: 32 Year
  Sex: Female

DRUGS (1)
  1. MIRENA [Suspect]
     Active Substance: LEVONORGESTREL
     Dosage: 20 MCG/24HR, CONT
     Route: 015

REACTIONS (6)
  - Crying [Unknown]
  - Depression [Unknown]
  - Dyspnoea [Unknown]
  - Suicidal ideation [Unknown]
  - Intentional self-injury [Unknown]
  - Asthenia [Unknown]
